FAERS Safety Report 6379248-5 (Version None)
Quarter: 2009Q3

REPORT INFORMATION
  Report Type: 
  Country: None (occurrence: None)
  Receive Date: 20090928
  Receipt Date: 20090925
  Transmission Date: 20100115
  Serious: Yes (Other)
  Sender: FDA-Public Use
  Company Number: A0809010A

PATIENT
  Age: 34 Year
  Sex: Female

DRUGS (1)
  1. NICODERM CQ [Suspect]
     Indication: SMOKING CESSATION THERAPY
     Dosage: 1PAT PER DAY
     Route: 062
     Dates: start: 20090902

REACTIONS (2)
  - AGGRESSION [None]
  - DRUG ADMINISTRATION ERROR [None]
